FAERS Safety Report 8129668-3 (Version None)
Quarter: 2012Q1

REPORT INFORMATION
  Report Type: 
  Country: None (occurrence: None)
  Receive Date: 20120210
  Receipt Date: 20120130
  Transmission Date: 20120608
  Serious: Yes (Hospitalization, Other)
  Sender: FDA-Public Use
  Company Number: AU-MYLANLABS-2012S1002174

PATIENT
  Age: 73 Year
  Sex: Male

DRUGS (2)
  1. ZYVOX [Suspect]
     Dates: end: 20100901
  2. METFORMIN HCL [Suspect]
     Indication: PRODUCT USED FOR UNKNOWN INDICATION
     Dates: end: 20100901

REACTIONS (7)
  - MYALGIA [None]
  - LACTIC ACIDOSIS [None]
  - DECREASED APPETITE [None]
  - URINE OUTPUT DECREASED [None]
  - NAUSEA [None]
  - VOMITING [None]
  - CREATININE URINE INCREASED [None]
